FAERS Safety Report 5099714-2 (Version None)
Quarter: 2006Q3

REPORT INFORMATION
  Report Type: 
  Country: None (occurrence: None)
  Receive Date: 20060908
  Receipt Date: 20060905
  Transmission Date: 20061208
  Serious: Yes (Disabling)
  Sender: FDA-Public Use
  Company Number: US-GLAXOSMITHKLINE-A0619302A

PATIENT
  Sex: Female

DRUGS (1)
  1. CEFTIN [Suspect]

REACTIONS (2)
  - ADVERSE EVENT [None]
  - GAIT DISTURBANCE [None]
